FAERS Safety Report 10021030 (Version 1)
Quarter: 2014Q1

REPORT INFORMATION
  Report Type: Spontaneous
  Country: TR (occurrence: TR)
  Receive Date: 20140319
  Receipt Date: 20140319
  Transmission Date: 20141002
  Serious: Yes (Death, Other)
  Sender: FDA-Public Use
  Company Number: TR-ASTELLAS-2014EU002114

PATIENT
  Age: 16 Year
  Sex: Female

DRUGS (8)
  1. TACROLIMUS SYSTEMIC [Suspect]
     Indication: IMMUNOSUPPRESSION
     Dosage: 2 MG, UNKNOWN/D
     Route: 048
  2. TACROLIMUS SYSTEMIC [Suspect]
     Dosage: 6 MG, UNKNOWN/D
     Route: 048
  3. TACROLIMUS SYSTEMIC [Suspect]
     Dosage: 10 MG, UNKNOWN/D
     Route: 048
  4. TACROLIMUS SYSTEMIC [Suspect]
     Dosage: 2 MG, UNKNOWN/D
     Route: 042
  5. TACROLIMUS SYSTEMIC [Suspect]
     Dosage: 4 MG, UNKNOWN/D
     Route: 048
  6. MYCOPHENOLATE MOFETIL [Suspect]
     Indication: IMMUNOSUPPRESSION
     Dosage: 1000 MG, UNKNOWN/D
     Route: 065
  7. PREDNISOLONE [Suspect]
     Indication: IMMUNOSUPPRESSION
     Dosage: 100 MG, UNKNOWN/D
     Route: 042
  8. CYCLOSPORINE [Concomitant]
     Indication: IMMUNOSUPPRESSION
     Dosage: UNK
     Route: 067

REACTIONS (5)
  - Sepsis [Fatal]
  - Multi-organ failure [Fatal]
  - Convulsion [Unknown]
  - Aspartate aminotransferase increased [Recovering/Resolving]
  - Alanine aminotransferase increased [Recovering/Resolving]
